FAERS Safety Report 24032753 (Version 1)
Quarter: 2024Q3

REPORT INFORMATION
  Report Type: Report from Study
  Country: US (occurrence: US)
  Receive Date: 20240701
  Receipt Date: 20240701
  Transmission Date: 20241016
  Serious: Yes (Hospitalization, Other)
  Sender: ABBVIE
  Company Number: US-ABBVIE-5814326

PATIENT
  Sex: Female

DRUGS (8)
  1. RESTASIS [Suspect]
     Active Substance: CYCLOSPORINE
     Indication: Dry eye
     Dosage: FORM STRENGTH: 0.5MG/ML
     Route: 061
     Dates: start: 2021
  2. GEMTESA [Concomitant]
     Active Substance: VIBEGRON
     Indication: Urinary incontinence
  3. PRIMIDONE [Concomitant]
     Active Substance: PRIMIDONE
     Indication: Essential tremor
  4. TRAMADOL [Concomitant]
     Active Substance: TRAMADOL\TRAMADOL HYDROCHLORIDE
     Indication: Pain
  5. SERTRALINE [Concomitant]
     Active Substance: SERTRALINE HYDROCHLORIDE
     Indication: Depression
  6. CYCLOBENZAPRINE [Concomitant]
     Active Substance: CYCLOBENZAPRINE
     Indication: Pain
  7. BUPROPION [Concomitant]
     Active Substance: BUPROPION
     Indication: Depression
  8. ROSUVASTATIN [Concomitant]
     Active Substance: ROSUVASTATIN
     Indication: Aortic stenosis

REACTIONS (4)
  - Osteoarthritis [Recovered/Resolved]
  - Back pain [Recovering/Resolving]
  - Spinal osteoarthritis [Recovering/Resolving]
  - Arthralgia [Recovered/Resolved]

NARRATIVE: CASE EVENT DATE: 20210101
